FAERS Safety Report 8884119 (Version 2)
Quarter: 2012Q4

REPORT INFORMATION
  Report Type: Report from Study
  Country: US (occurrence: US)
  Receive Date: 20121102
  Receipt Date: 20121211
  Transmission Date: 20130627
  Serious: Yes (Hospitalization)
  Sender: FDA-Public Use
  Company Number: US-ABBOTT-12P-163-1000968-00

PATIENT
  Age: 45 Year
  Sex: Female
  Weight: 65.38 kg

DRUGS (8)
  1. HUMIRA PEN [Suspect]
     Indication: CROHN^S DISEASE
  2. HUMIRA PEN [Suspect]
     Dates: start: 201207
  3. SYNTHYROID [Concomitant]
     Indication: THYROID DISORDER
     Dosage: 50 mcg daily
     Route: 048
  4. ALBUTEROL SULFATE [Concomitant]
     Indication: HYPERSENSITIVITY
     Dosage: 2-3 puffs every 4-6 hours; 0.083% NEBU
  5. PRILOSEC [Concomitant]
     Dosage: 20 MG TBEC
  6. AMBIEN [Concomitant]
     Indication: PRODUCT USED FOR UNKNOWN INDICATION
  7. PREDNISONE [Concomitant]
     Indication: PRODUCT USED FOR UNKNOWN INDICATION
  8. PENTASA [Concomitant]
     Indication: PRODUCT USED FOR UNKNOWN INDICATION

REACTIONS (9)
  - Small intestinal obstruction [Not Recovered/Not Resolved]
  - Nausea [Unknown]
  - Pain [Unknown]
  - Crohn^s disease [Unknown]
  - Nasopharyngitis [Not Recovered/Not Resolved]
  - Drug dose omission [Unknown]
  - Oesophageal candidiasis [Unknown]
  - Crohn^s disease [Unknown]
  - Odynophagia [Unknown]
